FAERS Safety Report 6402433-0 (Version None)
Quarter: 2009Q4

REPORT INFORMATION
  Report Type: 
  Country: None (occurrence: None)
  Receive Date: 20091015
  Receipt Date: 20091005
  Transmission Date: 20100525
  Serious: Yes (Hospitalization, Other)
  Sender: FDA-Public Use
  Company Number: JP-ELI_LILLY_AND_COMPANY-JP200910001873

PATIENT
  Sex: Male

DRUGS (1)
  1. HUMALOG [Suspect]
     Route: 058

REACTIONS (2)
  - MUSCULAR WEAKNESS [None]
  - PNEUMONIA [None]
